FAERS Safety Report 4538891-6 (Version None)
Quarter: 2004Q4

REPORT INFORMATION
  Report Type: 
  Country: None (occurrence: None)
  Receive Date: 20041227
  Receipt Date: 20041217
  Transmission Date: 20050328
  Serious: Yes (Hospitalization)
  Sender: FDA-Public Use
  Company Number: US-ABBOTT-04P-163-0284073-00

PATIENT
  Sex: Female

DRUGS (1)
  1. SYNTHROID [Suspect]
     Indication: DRUG USE FOR UNKNOWN INDICATION
     Route: 060

REACTIONS (1)
  - BLOOD THYROID STIMULATING HORMONE ABNORMAL [None]
